FAERS Safety Report 7977730-8 (Version None)
Quarter: 2011Q4

REPORT INFORMATION
  Report Type: 
  Country: None (occurrence: None)
  Receive Date: 20111214
  Receipt Date: 20111128
  Transmission Date: 20120403
  Serious: No
  Sender: FDA-Public Use
  Company Number: US-AMGEN-USASP2011062915

PATIENT
  Age: 45 Year
  Sex: Female

DRUGS (1)
  1. ENBREL [Suspect]
     Indication: RHEUMATOID ARTHRITIS
     Dosage: 50 MG, QWK
     Dates: start: 20101001

REACTIONS (8)
  - NERVOUSNESS [None]
  - HEADACHE [None]
  - RASH MACULAR [None]
  - MENSTRUATION IRREGULAR [None]
  - SINUS DISORDER [None]
  - DRY SKIN [None]
  - SKIN WRINKLING [None]
  - HYPOMENORRHOEA [None]
